FAERS Safety Report 19185431 (Version 8)
Quarter: 2022Q2

REPORT INFORMATION
  Report Type: Report from Study
  Country: US (occurrence: US)
  Receive Date: 20210427
  Receipt Date: 20220520
  Transmission Date: 20220720
  Serious: No
  Sender: FDA-Public Use
  Company Number: NVSC2021US087218

PATIENT
  Age: 35 Year
  Sex: Male

DRUGS (5)
  1. KESIMPTA [Suspect]
     Active Substance: OFATUMUMAB
     Indication: Product used for unknown indication
     Dosage: UNK
     Route: 065
     Dates: start: 20210325, end: 20220128
  2. XIIDRA [Concomitant]
     Active Substance: LIFITEGRAST
     Indication: Product used for unknown indication
     Dosage: UNK DRP, BID
     Route: 065
     Dates: end: 20220128
  3. OXTELLAR XR [Concomitant]
     Active Substance: OXCARBAZEPINE
     Indication: Product used for unknown indication
     Dosage: 600 MG, QD
     Route: 065
  4. LAMOTRIGINE [Concomitant]
     Active Substance: LAMOTRIGINE
     Indication: Product used for unknown indication
     Dosage: 150 MG, BID
     Route: 065
  5. KEPPRA [Concomitant]
     Active Substance: LEVETIRACETAM
     Indication: Product used for unknown indication
     Dosage: 1125 MG, BID
     Route: 065

REACTIONS (3)
  - Memory impairment [Unknown]
  - Throat tightness [Unknown]
  - Fatigue [Unknown]

NARRATIVE: CASE EVENT DATE: 20210325
